FAERS Safety Report 23404138 (Version 2)
Quarter: 2024Q2

REPORT INFORMATION
  Report Type: Report from Study
  Country: US (occurrence: US)
  Receive Date: 20240116
  Receipt Date: 20240410
  Transmission Date: 20240716
  Serious: Yes (Hospitalization)
  Sender: FDA-Public Use
  Company Number: US-JAZZ PHARMACEUTICALS-2024-US-000604

PATIENT
  Sex: Female

DRUGS (4)
  1. EPIDIOLEX [Suspect]
     Active Substance: CANNABIDIOL
     Indication: Tuberous sclerosis complex
     Dosage: 1 MILLILITER, BID
     Route: 048
     Dates: start: 202312
  2. EPIDIOLEX [Suspect]
     Active Substance: CANNABIDIOL
     Indication: Epilepsy
     Dosage: 1 MILLILITER, BID
     Route: 048
     Dates: start: 202311
  3. EPIDIOLEX [Suspect]
     Active Substance: CANNABIDIOL
     Indication: Partial seizures
  4. AFINITOR [Suspect]
     Active Substance: EVEROLIMUS
     Indication: Product used for unknown indication
     Dosage: UNK

REACTIONS (3)
  - Epigastric discomfort [Unknown]
  - Balance disorder [Unknown]
  - Drug hypersensitivity [Unknown]
